FAERS Safety Report 7124463-6 (Version None)
Quarter: 2010Q4

REPORT INFORMATION
  Report Type: 
  Country: None (occurrence: None)
  Receive Date: 20101126
  Receipt Date: 20101117
  Transmission Date: 20110411
  Serious: Yes (Disabling, Other)
  Sender: FDA-Public Use
  Company Number: BR-ELI_LILLY_AND_COMPANY-BR201008006224

PATIENT
  Sex: Female

DRUGS (4)
  1. FORTEO [Suspect]
     Dosage: 20 UG, DAILY (1/D)
     Route: 058
     Dates: start: 20100901
  2. FORTEO [Suspect]
     Dosage: UNK, UNKNOWN
     Route: 065
  3. OS-CAL [Concomitant]
     Indication: BONE DISORDER
     Dosage: UNK, UNKNOWN
     Route: 065
  4. ARTRODAR [Concomitant]
     Dosage: UNK, UNKNOWN
     Route: 065

REACTIONS (4)
  - DRUG WITHDRAWAL SYNDROME [None]
  - PAIN [None]
  - PARALYSIS [None]
  - SLEEP DISORDER [None]
